FAERS Safety Report 14233352 (Version 2)
Quarter: 2017Q4

REPORT INFORMATION
  Report Type: Spontaneous
  Country: CN (occurrence: CN)
  Receive Date: 20171129
  Receipt Date: 20171214
  Transmission Date: 20180321
  Serious: Yes (Death)
  Sender: FDA-Public Use
  Company Number: CN-ASTRAZENECA-2017SF20502

PATIENT
  Sex: Male

DRUGS (2)
  1. ASPIRIN. [Concomitant]
     Active Substance: ASPIRIN
     Dosage: NOT AZ PRODUCT, 300 MG UNKNOWN FREQUENCY
  2. BRILINTA [Suspect]
     Active Substance: TICAGRELOR
     Dosage: 180 MG
     Route: 048

REACTIONS (3)
  - Cerebral haemorrhage [Fatal]
  - Subarachnoid haemorrhage [Fatal]
  - Basal ganglia haemorrhage [Fatal]
